FAERS Safety Report 20012797 (Version 1)
Quarter: 2021Q4

REPORT INFORMATION
  Report Type: Spontaneous
  Country: US (occurrence: US)
  Receive Date: 20211029
  Receipt Date: 20211029
  Transmission Date: 20220303
  Serious: Yes (Hospitalization, Other)
  Sender: FDA-Public Use
  Company Number: US-MLMSERVICE-20211014-3169912-1

PATIENT
  Age: 58 Year
  Sex: Female

DRUGS (1)
  1. ACETAMINOPHEN [Suspect]
     Active Substance: ACETAMINOPHEN
     Indication: Pain
     Dosage: UNK
     Route: 048

REACTIONS (9)
  - Acute hepatic failure [Recovering/Resolving]
  - Hepatorenal syndrome [Recovering/Resolving]
  - Hepatic encephalopathy [Recovering/Resolving]
  - Toxicity to various agents [Recovering/Resolving]
  - Drug-induced liver injury [Recovering/Resolving]
  - Pancreatitis [Recovering/Resolving]
  - Drug level increased [Recovered/Resolved]
  - Coagulopathy [Recovering/Resolving]
  - Accidental overdose [Recovering/Resolving]
